FAERS Safety Report 7651035-7 (Version None)
Quarter: 2011Q3

REPORT INFORMATION
  Report Type: 
  Country: None (occurrence: None)
  Receive Date: 20110802
  Receipt Date: 20110729
  Transmission Date: 20111222
  Serious: Yes (Death, Hospitalization)
  Sender: FDA-Public Use
  Company Number: BR-ASTRAZENECA-2011SE45403

PATIENT
  Age: 85 Year
  Sex: Female

DRUGS (3)
  1. METOPROLOL SUCCINATE [Suspect]
     Indication: HYPERTENSION
     Route: 048
     Dates: start: 20090101
  2. LASIX [Concomitant]
     Indication: OEDEMA
     Route: 048
  3. OMEPRAZOLE [Suspect]
     Route: 048

REACTIONS (1)
  - PULMONARY OEDEMA [None]
